FAERS Safety Report 15742258 (Version 2)
Quarter: 2018Q4

REPORT INFORMATION
  Report Type: Spontaneous
  Country: FR (occurrence: FR)
  Receive Date: 20181219
  Receipt Date: 20181220
  Transmission Date: 20190205
  Serious: Yes (Hospitalization)
  Sender: FDA-Public Use
  Company Number: FR-SA-2018SA341642

PATIENT
  Age: 71 Year
  Sex: Female

DRUGS (2)
  1. STILNOX [Suspect]
     Active Substance: ZOLPIDEM TARTRATE
     Indication: SUICIDE ATTEMPT
     Dosage: NR
     Route: 048
     Dates: start: 20170123, end: 20170123
  2. MIANSERINE [Suspect]
     Active Substance: MIANSERIN HYDROCHLORIDE
     Indication: SUICIDE ATTEMPT
     Dosage: NR
     Route: 048
     Dates: start: 20170123, end: 20170123

REACTIONS (3)
  - Pneumonia aspiration [Recovered/Resolved]
  - Somnolence [Recovered/Resolved]
  - Hypoventilation [Recovered/Resolved]

NARRATIVE: CASE EVENT DATE: 20170123
